FAERS Safety Report 22284215 (Version 2)
Quarter: 2023Q2

REPORT INFORMATION
  Report Type: Spontaneous
  Country: FR (occurrence: FR)
  Receive Date: 20230504
  Receipt Date: 20230530
  Transmission Date: 20230722
  Serious: Yes (Hospitalization)
  Sender: FDA-Public Use
  Company Number: None

PATIENT
  Age: 78 Year
  Sex: Female
  Weight: 52 kg

DRUGS (14)
  1. PANTOPRAZOLE [Suspect]
     Active Substance: PANTOPRAZOLE
     Indication: Gastrointestinal disorder
     Dosage: 40 MILLIGRAM, QD
     Route: 048
     Dates: start: 20230405, end: 20230407
  2. ONDANSETRON [Suspect]
     Active Substance: ONDANSETRON
     Indication: Prophylaxis of nausea and vomiting
     Dosage: 8 MILLIGRAM, QD
     Route: 048
     Dates: start: 20230402, end: 20230405
  3. ACYCLOVIR [Suspect]
     Active Substance: ACYCLOVIR
     Indication: Herpes zoster
     Dosage: 500 MILLIGRAM, Q8HR
     Route: 048
     Dates: start: 20230401, end: 20230407
  4. ACETYLLEUCINE [Suspect]
     Active Substance: ACETYLLEUCINE
     Indication: Vertigo
     Dosage: 4 DOSAGE FORM, QD
     Route: 048
     Dates: start: 20230402, end: 20230407
  5. DEXTROSE\POTASSIUM CHLORIDE\SODIUM CHLORIDE [Suspect]
     Active Substance: DEXTROSE\POTASSIUM CHLORIDE\SODIUM CHLORIDE
     Indication: Dehydration
     Dosage: 1500 MILLILITER, QD
     Route: 048
     Dates: start: 20230402, end: 20230406
  6. CHLORPROMAZINE [Suspect]
     Active Substance: CHLORPROMAZINE
     Indication: Vomiting
     Dosage: 12.5 MILLIGRAM, QD
     Route: 048
     Dates: start: 20230406, end: 20230407
  7. METOCLOPRAMIDE [Suspect]
     Active Substance: METOCLOPRAMIDE
     Indication: Prophylaxis of nausea and vomiting
     Dosage: 40 MILLIGRAM, QD
     Route: 048
     Dates: start: 20230401, end: 20230405
  8. GAVISCON [Concomitant]
     Active Substance: ALUMINUM HYDROXIDE\MAGNESIUM CARBONATE
     Indication: Gastrointestinal disorder
     Dosage: 2 DOSAGE FORM, QD
     Route: 048
     Dates: start: 20230402, end: 20230406
  9. METHYLPREDNISOLONE [Concomitant]
     Active Substance: METHYLPREDNISOLONE
     Indication: Inflammation
     Dosage: 60 MILLIGRAM, QD
     Route: 048
     Dates: start: 20230402, end: 20230407
  10. ALPRAZOLAM [Concomitant]
     Active Substance: ALPRAZOLAM
     Dosage: 37.5 MILLIGRAM, QD
     Route: 048
     Dates: start: 20230406, end: 20230413
  11. REFRESH CELLUVISC [Concomitant]
     Active Substance: CARBOXYMETHYLCELLULOSE SODIUM
     Indication: Prophylaxis
     Dosage: 1 DOSAGE FORM, QD
     Route: 048
     Dates: start: 20230402, end: 20230407
  12. AMPHOTERICIN B [Concomitant]
     Active Substance: AMPHOTERICIN B
     Dosage: 4 DOSAGE FORM, QD
     Route: 048
     Dates: start: 20230405, end: 20230413
  13. PREDNISOLONE [Concomitant]
     Active Substance: PREDNISOLONE
     Dosage: UNK
     Route: 048
     Dates: start: 202304, end: 20230411
  14. LOVENOX [Concomitant]
     Active Substance: ENOXAPARIN SODIUM
     Indication: Thrombosis prophylaxis
     Dosage: 1 DOSAGE FORM, QD
     Route: 065
     Dates: start: 20230402, end: 20230407

REACTIONS (1)
  - Inappropriate antidiuretic hormone secretion [Recovered/Resolved]

NARRATIVE: CASE EVENT DATE: 20230407
